FAERS Safety Report 9252077 (Version 1)
Quarter: 2013Q2

REPORT INFORMATION
  Report Type: Spontaneous
  Country: SE (occurrence: SE)
  Receive Date: 20130424
  Receipt Date: 20130424
  Transmission Date: 20140414
  Serious: Yes (Other)
  Sender: FDA-Public Use
  Company Number: SE-MYLANLABS-2013S1008081

PATIENT
  Age: 84 Year
  Sex: Male

DRUGS (5)
  1. LOPERAMIDE [Suspect]
     Indication: DIARRHOEA
  2. QUINIDINE [Concomitant]
     Indication: ATRIAL FIBRILLATION
     Dates: start: 1988
  3. APROVEL [Concomitant]
     Indication: PRODUCT USED FOR UNKNOWN INDICATION
  4. DANAFUSIN [Concomitant]
     Indication: PRODUCT USED FOR UNKNOWN INDICATION
  5. DIGOXIN [Concomitant]
     Indication: ATRIAL FIBRILLATION

REACTIONS (1)
  - Atrial fibrillation [Unknown]
